FAERS Safety Report 25924152 (Version 1)
Quarter: 2025Q4

REPORT INFORMATION
  Report Type: Spontaneous
  Country: US (occurrence: US)
  Receive Date: 20251015
  Receipt Date: 20251015
  Transmission Date: 20260118
  Serious: Yes (Other)
  Sender: RICONPHARMA LLC
  Company Number: US-RICONPHARMA, LLC-2025RIC000027

PATIENT

DRUGS (1)
  1. SCOPOLAMINE [Suspect]
     Active Substance: SCOPOLAMINE
     Indication: Salivary hypersecretion
     Dosage: 1 MG/ 3DAY
     Route: 062

REACTIONS (13)
  - Loss of consciousness [Unknown]
  - Gait inability [Unknown]
  - Tremor [Unknown]
  - Lethargy [Unknown]
  - Hallucination [Unknown]
  - Urinary retention [Unknown]
  - Disorientation [Unknown]
  - Memory impairment [Unknown]
  - Headache [Unknown]
  - Visual impairment [Unknown]
  - Overdose [Unknown]
  - Medication error [Unknown]
  - Product use in unapproved indication [Unknown]
